FAERS Safety Report 8875926 (Version 1)
Quarter: 2012Q4

REPORT INFORMATION
  Report Type: 
  Country: US (occurrence: US)
  Receive Date: 20121030
  Receipt Date: 20121030
  Transmission Date: 20130627
  Serious: No
  Sender: FDA-Public Use
  Company Number: US-ASTRAZENECA-2012SE78603

PATIENT
  Age: 65 Year
  Sex: Female
  Weight: 65.3 kg

DRUGS (12)
  1. SEROQUEL [Suspect]
     Indication: BIPOLAR DISORDER
     Route: 048
     Dates: start: 2003, end: 2007
  2. SEROQUEL [Suspect]
     Indication: BIPOLAR DISORDER
     Route: 048
     Dates: start: 20120906, end: 20120910
  3. SEROQUEL [Suspect]
     Indication: BIPOLAR DISORDER
     Route: 048
     Dates: start: 20120911
  4. OXYCONTIN [Concomitant]
     Indication: PAIN
     Route: 048
     Dates: start: 201210
  5. PERCOCET [Concomitant]
     Indication: ARTHRITIS
     Dosage: 10MG/325 MG, EVERY FORU HOURS
     Route: 048
     Dates: start: 2009
  6. LASIX [Concomitant]
     Indication: OEDEMA PERIPHERAL
     Route: 048
     Dates: start: 2012
  7. LISINOPRIL [Concomitant]
     Indication: HYPERTENSION
     Route: 048
  8. PHENERGAN [Concomitant]
     Indication: NAUSEA
     Dosage: AS NEEDED
     Route: 048
     Dates: start: 2009
  9. DUCOLAX SUPP [Concomitant]
     Indication: CONSTIPATION
     Dosage: AS NEEDED
     Route: 054
     Dates: start: 2012
  10. ZOCOR [Concomitant]
     Indication: BLOOD CHOLESTEROL INCREASED
     Route: 048
     Dates: start: 1999
  11. TEMAZEPAM [Concomitant]
     Indication: INSOMNIA
     Route: 048
     Dates: start: 2009
  12. PROTONIX [Concomitant]
     Indication: GASTROOESOPHAGEAL REFLUX DISEASE
     Route: 048

REACTIONS (12)
  - Spinal osteoarthritis [Unknown]
  - Spinal osteoarthritis [Unknown]
  - Intervertebral disc degeneration [Unknown]
  - Exostosis [Unknown]
  - Exostosis [Unknown]
  - Pain [Unknown]
  - Arthritis [Unknown]
  - Therapeutic response unexpected [Unknown]
  - Insomnia [Unknown]
  - Constipation [Unknown]
  - Dyskinesia [Recovered/Resolved]
  - Drug ineffective [Unknown]
